FAERS Safety Report 24562162 (Version 1)
Quarter: 2024Q4

REPORT INFORMATION
  Report Type: Spontaneous
  Country: CA (occurrence: CA)
  Receive Date: 20241029
  Receipt Date: 20241029
  Transmission Date: 20250115
  Serious: Yes (Hospitalization)
  Sender: ROCHE
  Company Number: CA-ROCHE-10000117107

PATIENT
  Age: 57 Year
  Sex: Male

DRUGS (6)
  1. MYCOPHENOLATE MOFETIL [Suspect]
     Active Substance: MYCOPHENOLATE MOFETIL
     Indication: Morvan syndrome
     Route: 048
  2. PREDNISONE [Suspect]
     Active Substance: PREDNISONE
     Indication: Morvan syndrome
     Route: 048
  3. PREDNISONE [Suspect]
     Active Substance: PREDNISONE
     Route: 048
  4. DIFLUPREDNATE [Suspect]
     Active Substance: DIFLUPREDNATE
     Indication: Uveitis
     Route: 047
  5. IMMUNOGLOBULINS [Concomitant]
     Indication: Morvan syndrome
     Route: 042
  6. TIMOLOL [Concomitant]
     Active Substance: TIMOLOL\TIMOLOL MALEATE
     Indication: Product used for unknown indication
     Route: 065

REACTIONS (3)
  - Pneumonia haemophilus [Recovering/Resolving]
  - Rebound effect [Recovering/Resolving]
  - Uveitis [Recovering/Resolving]
